FAERS Safety Report 6164852-X (Version None)
Quarter: 2009Q2

REPORT INFORMATION
  Report Type: 
  Country: None (occurrence: None)
  Receive Date: 20090423
  Receipt Date: 20090210
  Transmission Date: 20091009
  Serious: No
  Sender: FDA-Public Use
  Company Number: A0767703A

PATIENT
  Age: 74 Year
  Sex: Female

DRUGS (5)
  1. LEUKERAN [Suspect]
     Dosage: 1TAB PER DAY
     Route: 048
     Dates: start: 20080501
  2. LISINOPRIL [Concomitant]
  3. MOBIC [Concomitant]
  4. FLECAINIDE ACETATE [Concomitant]
  5. PREVACID [Concomitant]

REACTIONS (1)
  - WHITE BLOOD CELL COUNT INCREASED [None]
